FAERS Safety Report 18525950 (Version 4)
Quarter: 2021Q1

REPORT INFORMATION
  Report Type: Spontaneous
  Country: US (occurrence: US)
  Receive Date: 20201120
  Receipt Date: 20210105
  Transmission Date: 20210419
  Serious: Yes (Hospitalization, Other)
  Sender: FDA-Public Use
  Company Number: US-KARYOPHARM-2020KPT001353

PATIENT

DRUGS (3)
  1. ZOFRAN [Concomitant]
     Active Substance: ONDANSETRON HYDROCHLORIDE
     Indication: PROPHYLAXIS OF NAUSEA AND VOMITING
     Dosage: UNK
  2. XPOVIO [Suspect]
     Active Substance: SELINEXOR
     Indication: PLASMA CELL MYELOMA
     Dosage: 80 MG, 2X/WEEK
     Route: 048
     Dates: start: 20201029
  3. DEXAMETHASONE. [Concomitant]
     Active Substance: DEXAMETHASONE
     Indication: PLASMA CELL MYELOMA
     Dosage: UNK

REACTIONS (17)
  - Urinary retention [Unknown]
  - Nausea [Not Recovered/Not Resolved]
  - Therapeutic product effect decreased [Unknown]
  - Vomiting [Not Recovered/Not Resolved]
  - Dehydration [Unknown]
  - Hypokalaemia [Unknown]
  - Platelet count decreased [Unknown]
  - Back pain [Unknown]
  - Diarrhoea [Not Recovered/Not Resolved]
  - Rash [Unknown]
  - Stomatitis [Unknown]
  - Headache [Unknown]
  - Plasmacytoma [Not Recovered/Not Resolved]
  - Sensory disturbance [Unknown]
  - Decreased appetite [Not Recovered/Not Resolved]
  - Mobility decreased [Unknown]
  - Leukopenia [Recovering/Resolving]

NARRATIVE: CASE EVENT DATE: 20201030
